FAERS Safety Report 23335507 (Version 4)
Quarter: 2024Q1

REPORT INFORMATION
  Report Type: Report from Study
  Country: CN (occurrence: CN)
  Receive Date: 20231225
  Receipt Date: 20240209
  Transmission Date: 20240410
  Serious: Yes (Hospitalization)
  Sender: FDA-Public Use
  Company Number: CN-BAXTER-2023BAX038807

PATIENT
  Age: 56 Year
  Sex: Female
  Weight: 68.8 kg

DRUGS (23)
  1. CYCLOPHOSPHAMIDE [Suspect]
     Active Substance: CYCLOPHOSPHAMIDE
     Indication: Breast cancer female
     Dosage: 1026.0 MILLIGRAM, Q3W, DOSAGE FORM: SOLUTION FOR INJECTION, AS A PART OF FIRST CYCLE OF AC REGIMEN,
     Route: 041
     Dates: start: 20231117, end: 20231117
  2. PERJETA [Suspect]
     Active Substance: PERTUZUMAB
     Indication: Breast cancer female
     Dosage: 840 MG, CYCLE 1
     Route: 065
     Dates: start: 20230621, end: 20230621
  3. PERJETA [Suspect]
     Active Substance: PERTUZUMAB
     Dosage: 420 MG, CYCLE 2
     Route: 065
     Dates: start: 20230711, end: 20230711
  4. PERJETA [Suspect]
     Active Substance: PERTUZUMAB
     Dosage: 420 MG, CYCLE 3
     Route: 065
     Dates: start: 20230801, end: 20230801
  5. PERJETA [Suspect]
     Active Substance: PERTUZUMAB
     Dosage: 420 MG, CYCLE 4
     Route: 065
     Dates: start: 20230824, end: 20230824
  6. TRASTUZUMAB [Suspect]
     Active Substance: TRASTUZUMAB
     Indication: Breast cancer female
     Dosage: 544 MILLIGRAM, Q3W, CYCLE 1
     Route: 041
     Dates: start: 20230621, end: 20230621
  7. TRASTUZUMAB [Suspect]
     Active Substance: TRASTUZUMAB
     Dosage: 544 MILLIGRAM, Q3W, CYCLE 1
     Route: 041
     Dates: start: 20230621, end: 20230621
  8. TRASTUZUMAB [Suspect]
     Active Substance: TRASTUZUMAB
     Dosage: 408 MILLIGRAM, Q3W, CYCLE 2
     Route: 041
     Dates: start: 20230711, end: 20230711
  9. TRASTUZUMAB [Suspect]
     Active Substance: TRASTUZUMAB
     Dosage: 408 MILLIGRAM, Q3W, CYCLE 2
     Route: 041
     Dates: start: 20230711, end: 20230711
  10. TRASTUZUMAB [Suspect]
     Active Substance: TRASTUZUMAB
     Dosage: 408 MILLIGRAM, Q3W, CYCLE 3
     Route: 041
     Dates: start: 20230801, end: 20230801
  11. TRASTUZUMAB [Suspect]
     Active Substance: TRASTUZUMAB
     Dosage: 408 MILLIGRAM, Q3W, CYCLE 3
     Route: 041
     Dates: start: 20230801, end: 20230801
  12. TRASTUZUMAB [Suspect]
     Active Substance: TRASTUZUMAB
     Dosage: 408 MILLIGRAM, Q3W, CYCLE 4
     Route: 041
     Dates: start: 20230824, end: 20230824
  13. TRASTUZUMAB [Suspect]
     Active Substance: TRASTUZUMAB
     Dosage: 408 MILLIGRAM, Q3W, CYCLE 4
     Route: 041
     Dates: start: 20230824, end: 20230824
  14. DOXORUBICIN [Suspect]
     Active Substance: DOXORUBICIN
     Indication: Breast cancer female
     Dosage: 102.6 MILLIGRAM, Q3W, FIRST CYCLE OF AC REGIMEN, ADMINISTERED WITH MICROPUMP, CYCLE 5
     Route: 041
     Dates: start: 20231117, end: 20231117
  15. DOCETAXEL [Suspect]
     Active Substance: DOCETAXEL\DOCETAXEL ANHYDROUS
     Indication: Breast cancer female
     Dosage: 128.3 MG, Q3W, CYCLE 1
     Route: 065
     Dates: start: 20230621
  16. DOCETAXEL [Suspect]
     Active Substance: DOCETAXEL\DOCETAXEL ANHYDROUS
     Dosage: 128.3 MG, Q3W, CYCLE 1
     Route: 065
     Dates: start: 20230621
  17. DOCETAXEL [Suspect]
     Active Substance: DOCETAXEL\DOCETAXEL ANHYDROUS
     Dosage: 128.3 MG, Q3W, CYCLE 2
     Route: 065
     Dates: start: 20230711
  18. DOCETAXEL [Suspect]
     Active Substance: DOCETAXEL\DOCETAXEL ANHYDROUS
     Dosage: 128.3 MG, Q3W, CYCLE 2
     Route: 065
     Dates: start: 20230711
  19. DOCETAXEL [Suspect]
     Active Substance: DOCETAXEL\DOCETAXEL ANHYDROUS
     Dosage: 128.3 MG, Q3W, CYCLE 3
     Route: 065
     Dates: start: 20230801
  20. DOCETAXEL [Suspect]
     Active Substance: DOCETAXEL\DOCETAXEL ANHYDROUS
     Dosage: 128.3 MG, Q3W, CYCLE 3
     Route: 065
     Dates: start: 20230801
  21. DOCETAXEL [Suspect]
     Active Substance: DOCETAXEL\DOCETAXEL ANHYDROUS
     Dosage: 128.3 MG, Q3W, CYCLE 4
     Route: 065
     Dates: start: 20230824
  22. DOCETAXEL [Suspect]
     Active Substance: DOCETAXEL\DOCETAXEL ANHYDROUS
     Dosage: 128.3 MG, Q3W, CYCLE 4
     Route: 065
     Dates: start: 20230824
  23. THROMBOPOIETIN [Concomitant]
     Active Substance: THROMBOPOIETIN
     Indication: Platelet count decreased
     Dosage: 15000IU, ONCE DAILY (QD)
     Route: 058
     Dates: start: 20231124, end: 20231126

REACTIONS (1)
  - Incision site impaired healing [Recovered/Resolved]
